FAERS Safety Report 5122414-7 (Version None)
Quarter: 2006Q4

REPORT INFORMATION
  Report Type: 
  Country: None (occurrence: None)
  Receive Date: 20061004
  Receipt Date: 20060927
  Transmission Date: 20070319
  Serious: Yes (Congenital Anomaly, Other)
  Sender: FDA-Public Use
  Company Number: 96/00012-USA

PATIENT
  Age: 1 Day
  Sex: Male
  Weight: 2.8 kg

DRUGS (4)
  1. FLUDARA [Suspect]
     Indication: CHRONIC LYMPHOCYTIC LEUKAEMIA
     Dosage: 25 MG/M2, CYCLE X 5D, INTRAVENOUS
     Route: 042
     Dates: start: 19950404, end: 19950409
  2. FLUDARA [Suspect]
     Indication: CHRONIC LYMPHOCYTIC LEUKAEMIA
     Dosage: 25 MG/M2, CYCLE X 5D, INTRAVENOUS
     Route: 042
     Dates: start: 19950501, end: 19950506
  3. FLUDARA [Suspect]
     Indication: CHRONIC LYMPHOCYTIC LEUKAEMIA
     Dosage: 25 MG/M2, CYCLE X 5D, INTRAVENOUS
     Route: 042
     Dates: start: 19950605, end: 19950610
  4. FLUDARA [Suspect]
     Indication: CHRONIC LYMPHOCYTIC LEUKAEMIA
     Dosage: 25 MG/M2, CYCLE X 5D, INTRAVENOUS
     Route: 042
     Dates: start: 19950626, end: 19950701

REACTIONS (13)
  - ATRIAL SEPTAL DEFECT [None]
  - CARDIAC ANEURYSM [None]
  - CONGENITAL MUSCULOSKELETAL ANOMALY [None]
  - DENTOFACIAL ANOMALY [None]
  - DRUG EXPOSURE BEFORE PREGNANCY [None]
  - DRUG EXPOSURE DURING PREGNANCY [None]
  - HAEMATOCHEZIA [None]
  - MELANOCYTIC NAEVUS [None]
  - MULTIPLE CONGENITAL ABNORMALITIES [None]
  - NEONATAL DISORDER [None]
  - PATENT DUCTUS ARTERIOSUS [None]
  - THROMBOCYTOPENIA NEONATAL [None]
  - TOXICOLOGIC TEST ABNORMAL [None]
